FAERS Safety Report 8995462 (Version 1)
Quarter: 2013Q1

REPORT INFORMATION
  Report Type: Spontaneous
  Country: US (occurrence: US)
  Receive Date: 20130103
  Receipt Date: 20130103
  Transmission Date: 20140127
  Serious: No
  Sender: FDA-Public Use
  Company Number: US-ABBOTT-12P-163-0916449-00

PATIENT
  Age: 54 Year
  Sex: Female
  Weight: 79.45 kg

DRUGS (4)
  1. SYNTHROID [Suspect]
     Indication: PRODUCT USED FOR UNKNOWN INDICATION
  2. SYNTHROID [Suspect]
     Dates: start: 2012
  3. NAPROXEN [Concomitant]
     Indication: PRODUCT USED FOR UNKNOWN INDICATION
  4. SPRINTEC [Concomitant]
     Indication: CONTRACEPTION

REACTIONS (5)
  - Bipolar disorder [Recovering/Resolving]
  - Underdose [Not Recovered/Not Resolved]
  - Overdose [Not Recovered/Not Resolved]
  - Weight increased [Not Recovered/Not Resolved]
  - Hyperhidrosis [Not Recovered/Not Resolved]
